FAERS Safety Report 24680681 (Version 2)
Quarter: 2025Q3

REPORT INFORMATION
  Report Type: Report from Study
  Country: US (occurrence: US)
  Receive Date: 20241129
  Receipt Date: 20250810
  Transmission Date: 20251020
  Serious: Yes (Other)
  Sender: ALEXION PHARMACEUTICALS
  Company Number: US-AstraZeneca-CH-00754514A

PATIENT
  Sex: Female
  Weight: 54.884 kg

DRUGS (10)
  1. CAPIVASERTIB [Suspect]
     Active Substance: CAPIVASERTIB
     Indication: Malignant neoplasm progression
     Dosage: 400 MILLIGRAM, BID
     Dates: start: 20241024
  2. Coriolus versicolor [Concomitant]
     Route: 065
  3. CRANBERRY [Concomitant]
     Active Substance: CRANBERRY
     Route: 065
  4. Eupatorium [Concomitant]
     Route: 065
  5. IBUPROFEN [Concomitant]
     Active Substance: IBUPROFEN
     Route: 065
  6. MAGNESIUM [Concomitant]
     Active Substance: MAGNESIUM
     Route: 065
  7. MINERALS\VITAMINS [Concomitant]
     Active Substance: MINERALS\VITAMINS
     Route: 065
  8. VITAMIN B COMPLEX [Concomitant]
     Active Substance: CYANOCOBALAMIN\DEXPANTHENOL\NIACINAMIDE\PYRIDOXINE HYDROCHLORIDE\RIBOFLAVIN 5^-PHOSPHATE SODIUM\THIA
     Route: 065
  9. VITAMIN D3 [Concomitant]
     Active Substance: CHOLECALCIFEROL
     Route: 065
  10. MENAQUINONE 6 [Concomitant]
     Active Substance: MENAQUINONE 6
     Route: 065

REACTIONS (4)
  - Haematochezia [Recovered/Resolved]
  - Dysentery [Recovered/Resolved]
  - Fatigue [Recovered/Resolved]
  - Product dose omission issue [Recovered/Resolved]
